FAERS Safety Report 25091017 (Version 1)
Quarter: 2025Q1

REPORT INFORMATION
  Report Type: Report from Study
  Country: CA (occurrence: CA)
  Receive Date: 20250318
  Receipt Date: 20250318
  Transmission Date: 20250408
  Serious: No
  Sender: TAKEDA
  Company Number: CA-TAKEDA-2024TUS092802

PATIENT
  Sex: Male

DRUGS (27)
  1. HUMAN IMMUNOGLOBULIN G\HYALURONIDASE RECOMBINANT HUMAN [Suspect]
     Active Substance: HUMAN IMMUNOGLOBULIN G\HYALURONIDASE (HUMAN RECOMBINANT)
     Indication: Secondary immunodeficiency
     Dosage: UNK UNK, Q4WEEKS
     Dates: start: 20240908
  2. HUMAN IMMUNOGLOBULIN G\HYALURONIDASE RECOMBINANT HUMAN [Suspect]
     Active Substance: HUMAN IMMUNOGLOBULIN G\HYALURONIDASE (HUMAN RECOMBINANT)
     Dosage: 80 GRAM, MONTHLY
  3. HUMAN IMMUNOGLOBULIN G\HYALURONIDASE RECOMBINANT HUMAN [Suspect]
     Active Substance: HUMAN IMMUNOGLOBULIN G\HYALURONIDASE (HUMAN RECOMBINANT)
     Dosage: 80 GRAM, Q4WEEKS
  4. HUMAN IMMUNOGLOBULIN G\HYALURONIDASE RECOMBINANT HUMAN [Suspect]
     Active Substance: HUMAN IMMUNOGLOBULIN G\HYALURONIDASE (HUMAN RECOMBINANT)
     Dosage: 80 GRAM, Q4WEEKS
     Dates: end: 2024
  5. COVID-19 VACCINE NOS [Suspect]
     Active Substance: COVID-19 VACCINE
     Indication: Product used for unknown indication
  6. TACROLIMUS [Concomitant]
     Active Substance: TACROLIMUS
  7. AMLODIPINE [Concomitant]
     Active Substance: AMLODIPINE BESYLATE
  8. AMOXICILLIN [Concomitant]
     Active Substance: AMOXICILLIN
  9. Auro silodosin [Concomitant]
  10. CALCIUM [Concomitant]
     Active Substance: CALCIUM
  11. DASATINIB [Concomitant]
     Active Substance: DASATINIB
  12. DENOSUMAB [Concomitant]
     Active Substance: DENOSUMAB
     Dosage: 60 MILLIGRAM, Q6MONTHS
  13. DULOXETINE [Concomitant]
     Active Substance: DULOXETINE
  14. ENTRESTO [Concomitant]
     Active Substance: SACUBITRIL\VALSARTAN
  15. FERROUS GLUCONATE [Concomitant]
     Active Substance: FERROUS GLUCONATE
  16. FUROSEMIDE [Concomitant]
     Active Substance: FUROSEMIDE
  17. HYDROMORPHONE HCL [Concomitant]
     Active Substance: HYDROMORPHONE HYDROCHLORIDE
  18. Ipravent [Concomitant]
  19. MAGNESIUM [Concomitant]
     Active Substance: MAGNESIUM
  20. METOPROLOL [Concomitant]
     Active Substance: METOPROLOL
  21. MYFORTIC [Concomitant]
     Active Substance: MYCOPHENOLATE SODIUM
  22. MYFORTIC [Concomitant]
     Active Substance: MYCOPHENOLATE SODIUM
  23. OMEGA 3 [Concomitant]
     Active Substance: CAPSAICIN
  24. OZEMPIC [Concomitant]
     Active Substance: SEMAGLUTIDE
  25. PANTOPRAZOLE MAGNESIUM [Concomitant]
     Active Substance: PANTOPRAZOLE MAGNESIUM
  26. PREDNISONE [Concomitant]
     Active Substance: PREDNISONE
  27. ROSUVASTATIN [Concomitant]
     Active Substance: ROSUVASTATIN

REACTIONS (7)
  - Drug hypersensitivity [Unknown]
  - Skin disorder [Unknown]
  - Fatigue [Unknown]
  - Blood pressure fluctuation [Unknown]
  - Blood glucose decreased [Unknown]
  - Hypoglycaemia [Unknown]
  - Immunisation reaction [Unknown]

NARRATIVE: CASE EVENT DATE: 20240101
